FAERS Safety Report 7131527-X (Version None)
Quarter: 2010Q4

REPORT INFORMATION
  Report Type: 
  Country: None (occurrence: None)
  Receive Date: 20101201
  Receipt Date: 20101129
  Transmission Date: 20110411
  Serious: Yes (Death)
  Sender: FDA-Public Use
  Company Number: KR-PFIZER INC-2009249388

PATIENT
  Age: 63 Year
  Sex: Male
  Weight: 64.5 kg

DRUGS (4)
  1. VORICONAZOLE [Suspect]
     Indication: ASPERGILLOSIS
     Dosage: 200 MG, 2X/DAY
     Route: 048
     Dates: start: 20080322, end: 20080415
  2. CIPROFLOXACIN [Concomitant]
     Route: 048
     Dates: start: 20080322, end: 20080415
  3. CEFDITOREN PIVOXIL [Concomitant]
     Route: 048
     Dates: start: 20080322, end: 20080415
  4. ACETYLCYSTEINE [Concomitant]
     Route: 048
     Dates: start: 20080322, end: 20080415

REACTIONS (5)
  - ACUTE RESPIRATORY DISTRESS SYNDROME [None]
  - DISSEMINATED INTRAVASCULAR COAGULATION [None]
  - PNEUMONIA [None]
  - RENAL FAILURE CHRONIC [None]
  - SEPSIS [None]
